FAERS Safety Report 7659007-3 (Version None)
Quarter: 2011Q3

REPORT INFORMATION
  Report Type: 
  Country: None (occurrence: None)
  Receive Date: 20110805
  Receipt Date: 20110722
  Transmission Date: 20111222
  Serious: Yes (Other)
  Sender: FDA-Public Use
  Company Number: US-ELI_LILLY_AND_COMPANY-US201105003036

PATIENT
  Sex: Female

DRUGS (9)
  1. LIPITOR [Concomitant]
     Dosage: UNK, UNKNOWN
     Route: 065
  2. MULTI-VITAMIN [Concomitant]
     Dosage: UNK, UNKNOWN
     Route: 065
  3. ASPIRIN [Concomitant]
     Dosage: UNK, UNKNOWN
     Route: 065
  4. FORTEO [Suspect]
     Dosage: 20 UG, QD
  5. FORTEO [Suspect]
     Dosage: 20 UG, QD
  6. FORTEO [Suspect]
     Indication: OSTEOPOROSIS
     Dosage: 20 UG, QD
     Route: 065
     Dates: start: 20100901
  7. FORTEO [Suspect]
     Dosage: 20 UG, QD
  8. CALCIUM ACETATE [Concomitant]
     Dosage: UNK, UNKNOWN
     Route: 065
  9. ACCUPRIL [Concomitant]
     Indication: BLOOD PRESSURE
     Dosage: UNK, UNKNOWN
     Route: 065

REACTIONS (5)
  - PATELLA FRACTURE [None]
  - INJECTION SITE ERYTHEMA [None]
  - FALL [None]
  - AMNESIA [None]
  - BALANCE DISORDER [None]
